FAERS Safety Report 5251874-6 (Version None)
Quarter: 2007Q1

REPORT INFORMATION
  Report Type: 
  Country: None (occurrence: None)
  Receive Date: 20070228
  Receipt Date: 20070213
  Transmission Date: 20070707
  Serious: Yes (Hospitalization, Other)
  Sender: FDA-Public Use
  Company Number: US-PFIZER INC-2006056193

PATIENT
  Sex: Female

DRUGS (2)
  1. BEXTRA [Suspect]
     Indication: MIGRAINE
  2. BEXTRA [Suspect]
     Indication: BONE PAIN

REACTIONS (4)
  - CEREBROVASCULAR ACCIDENT [None]
  - HYPERTENSION [None]
  - MYOCARDIAL INFARCTION [None]
  - THROMBOSIS [None]
